FAERS Safety Report 7512281-6 (Version None)
Quarter: 2011Q2

REPORT INFORMATION
  Report Type: 
  Country: None (occurrence: None)
  Receive Date: 20110531
  Receipt Date: 20110517
  Transmission Date: 20111010
  Serious: Yes (Other)
  Sender: FDA-Public Use
  Company Number: PHHY2011DE43693

PATIENT
  Age: 80 Year
  Sex: Female

DRUGS (3)
  1. ZOLEDRONIC ACID [Suspect]
     Indication: OSTEOPOROSIS POSTMENOPAUSAL
     Route: 042
  2. CALCIUM CARBONATE [Concomitant]
     Dosage: 1000 MG, UNK
  3. VITAMIN D [Concomitant]
     Dosage: 1000 IU, PER DAY

REACTIONS (6)
  - GRAND MAL CONVULSION [None]
  - DIZZINESS [None]
  - HYPOGLYCAEMIC SEIZURE [None]
  - LOSS OF CONSCIOUSNESS [None]
  - BLOOD GLUCOSE DECREASED [None]
  - TARDIVE DYSKINESIA [None]
